FAERS Safety Report 19434186 (Version 1)
Quarter: 2021Q2

REPORT INFORMATION
  Report Type: Spontaneous
  Country: US (occurrence: US)
  Receive Date: 20210617
  Receipt Date: 20210617
  Transmission Date: 20210717
  Serious: No
  Sender: FDA-Public Use
  Company Number: US-ROCHE-2583158

PATIENT
  Age: 78 Year
  Sex: Male
  Weight: 104.87 kg

DRUGS (4)
  1. ACTEMRA [Suspect]
     Active Substance: TOCILIZUMAB
     Indication: GIANT CELL ARTERITIS
     Route: 058
     Dates: start: 2019, end: 2019
  2. PREDNISONE. [Concomitant]
     Active Substance: PREDNISONE
  3. PREDNISONE. [Concomitant]
     Active Substance: PREDNISONE
     Indication: GIANT CELL ARTERITIS
  4. ACTEMRA [Suspect]
     Active Substance: TOCILIZUMAB
     Route: 058
     Dates: start: 2019, end: 2019

REACTIONS (7)
  - Cough [Recovered/Resolved]
  - Sinus polyp [Not Recovered/Not Resolved]
  - Sinusitis [Recovered/Resolved]
  - Cough [Unknown]
  - Weight increased [Not Recovered/Not Resolved]
  - Infection [Recovered/Resolved]
  - Sinus polyp [Recovered/Resolved]

NARRATIVE: CASE EVENT DATE: 2019
